FAERS Safety Report 4950109-9 (Version None)
Quarter: 2006Q1

REPORT INFORMATION
  Report Type: 
  Country: None (occurrence: None)
  Receive Date: 20060320
  Receipt Date: 20060320
  Transmission Date: 20060701
  Serious: Yes (Life-Threatening, Hospitalization)
  Sender: FDA-Public Use
  Company Number: None

PATIENT
  Age: 31 Year
  Sex: Male

DRUGS (1)
  1. MINOCYCLINE HCL [Suspect]
     Indication: ACNE
     Dosage: 50MG  BID  PO
     Route: 048
     Dates: start: 20051101, end: 20060228

REACTIONS (8)
  - ALANINE AMINOTRANSFERASE INCREASED [None]
  - ASPARTATE AMINOTRANSFERASE INCREASED [None]
  - BLOOD BILIRUBIN INCREASED [None]
  - BODY TEMPERATURE INCREASED [None]
  - NAUSEA [None]
  - PROTHROMBIN TIME PROLONGED [None]
  - SECRETION DISCHARGE [None]
  - VOMITING [None]
